FAERS Safety Report 4438668-6 (Version None)
Quarter: 2004Q3

REPORT INFORMATION
  Report Type: 
  Country: None (occurrence: None)
  Receive Date: 20040827
  Receipt Date: 20040820
  Transmission Date: 20050211
  Serious: Yes (Life-Threatening, Hospitalization, Disabling)
  Sender: FDA-Public Use
  Company Number: 2004PK01077

PATIENT
  Age: 68 Year
  Sex: Female
  Weight: 72 kg

DRUGS (4)
  1. NAROPIN [Suspect]
     Indication: ANALGESIC EFFECT
     Dosage: 0.2% ONCE PNEU
  2. PROPOFOL [Concomitant]
  3. ULTIVA [Concomitant]
  4. BASOCEF [Concomitant]

REACTIONS (8)
  - ANTERIOR SPINAL ARTERY SYNDROME [None]
  - ASTHENIA [None]
  - CARDIOVASCULAR DISORDER [None]
  - CHEST PAIN [None]
  - PARAPLEGIA [None]
  - POST PROCEDURAL COMPLICATION [None]
  - RESPIRATORY FAILURE [None]
  - THROMBOSIS [None]
